FAERS Safety Report 16684775 (Version 3)
Quarter: 2019Q3

REPORT INFORMATION
  Report Type: Spontaneous
  Country: US (occurrence: US)
  Receive Date: 20190808
  Receipt Date: 20190926
  Transmission Date: 20191004
  Serious: Yes (Hospitalization, Other)
  Sender: FDA-Public Use
  Company Number: US-PFIZER INC-2019337608

PATIENT
  Age: 58 Year
  Sex: Female
  Weight: 65.77 kg

DRUGS (6)
  1. RESTASIS [Interacting]
     Active Substance: CYCLOSPORINE
     Dosage: 4 GTT, 1X/DAY (2 DROPS PER EYE/DAY)
     Dates: start: 20160101, end: 201811
  2. RESTASIS [Interacting]
     Active Substance: CYCLOSPORINE
     Indication: DRY EYE
     Dosage: 2 GTT, 2X/DAY (TWICE A DAY ONE DROP IN EACH EYE)
     Dates: start: 2016, end: 201806
  3. LEVOTHYROXINE. [Concomitant]
     Active Substance: LEVOTHYROXINE
     Indication: HYPOTHYROIDISM
     Dosage: 25 UG, 1X/DAY
     Dates: start: 2016
  4. CEPHALEXIN [CEFALEXIN] [Concomitant]
     Active Substance: CEPHALEXIN
     Dosage: 2000 MG, DAILY (500 MG, 4 TABS A DAY)
     Dates: start: 20180115, end: 20180121
  5. MEDROL [Suspect]
     Active Substance: METHYLPREDNISOLONE
     Indication: COUGH
     Dosage: UNKNOWN
     Dates: start: 20180115, end: 20180120
  6. MEDROL [Interacting]
     Active Substance: METHYLPREDNISOLONE
     Indication: INFLUENZA
     Dosage: UNK
     Dates: start: 20180115, end: 20180620

REACTIONS (5)
  - Labelled drug-drug interaction medication error [Unknown]
  - Arthralgia [Unknown]
  - Osteonecrosis [Not Recovered/Not Resolved]
  - Product use in unapproved indication [Unknown]
  - Off label use [Unknown]

NARRATIVE: CASE EVENT DATE: 20180115
